FAERS Safety Report 15158239 (Version 1)
Quarter: 2018Q3

REPORT INFORMATION
  Report Type: Spontaneous
  Country: GB (occurrence: GB)
  Receive Date: 20180718
  Receipt Date: 20180718
  Transmission Date: 20181010
  Serious: Yes (Other)
  Sender: FDA-Public Use
  Company Number: GB-MYLANLABS-2018M1051096

PATIENT
  Sex: Male

DRUGS (1)
  1. EFUDIX 5% CREAM [Suspect]
     Active Substance: FLUOROURACIL
     Indication: SKIN DISORDER
     Route: 061

REACTIONS (2)
  - Incorrect route of drug administration [Unknown]
  - Paraesthesia [Unknown]
